FAERS Safety Report 9789892 (Version 1)
Quarter: 2013Q4

REPORT INFORMATION
  Report Type: Spontaneous
  Country: US (occurrence: None)
  Receive Date: 20131227
  Receipt Date: 20131227
  Transmission Date: 20140711
  Serious: Yes (Hospitalization, Other)
  Sender: FDA-Public Use
  Company Number: ADR-2013-02337

PATIENT
  Sex: Male

DRUGS (2)
  1. BACLOFEN [Suspect]
     Indication: CANCER PAIN
  2. MORPHINE [Suspect]

REACTIONS (7)
  - Mental status changes [None]
  - Weight decreased [None]
  - Hypophagia [None]
  - Bedridden [None]
  - Confusional state [None]
  - Implant site infection [None]
  - Incorrect dose administered [None]
